FAERS Safety Report 14602661 (Version 1)
Quarter: 2018Q1

REPORT INFORMATION
  Report Type: Spontaneous
  Country: DE (occurrence: DE)
  Receive Date: 20180306
  Receipt Date: 20180306
  Transmission Date: 20180509
  Serious: Yes (Hospitalization)
  Sender: FDA-Public Use
  Company Number: DE-ASTRAZENECA-2018SE26282

PATIENT
  Age: 78 Year
  Sex: Female

DRUGS (6)
  1. SALMETEROL/FLUTICASONE [Concomitant]
     Active Substance: FLUTICASONE PROPIONATE\SALMETEROL XINAFOATE
     Dosage: 50/250 METERED DOSE INHALER 2X2 PUFFS
  2. PREDNISOLON [Concomitant]
     Active Substance: PREDNISOLONE
     Indication: BREATH SOUNDS ABNORMAL
     Route: 048
  3. PREDNISOLON [Concomitant]
     Active Substance: PREDNISOLONE
     Indication: PRODUCTIVE COUGH
     Route: 048
  4. ACLIDINIUM BROMIDE. [Suspect]
     Active Substance: ACLIDINIUM BROMIDE
     Dosage: 322 2X1 PUFF
     Route: 055
  5. PREDNISOLON [Concomitant]
     Active Substance: PREDNISOLONE
     Indication: DYSPNOEA
     Route: 048
  6. SALBUTAMOL [Concomitant]
     Active Substance: ALBUTEROL
     Dosage: AS REQUIRED

REACTIONS (2)
  - Nasal polyps [Unknown]
  - Asthma [Recovered/Resolved]
